FAERS Safety Report 7500892-3 (Version None)
Quarter: 2011Q2

REPORT INFORMATION
  Report Type: 
  Country: None (occurrence: None)
  Receive Date: 20110524
  Receipt Date: 20110517
  Transmission Date: 20111010
  Serious: Yes (Life-Threatening, Hospitalization)
  Sender: FDA-Public Use
  Company Number: B0719472A

PATIENT
  Sex: Male

DRUGS (6)
  1. DEPAMIDE [Suspect]
     Route: 065
  2. PAROXETINE HCL [Suspect]
     Route: 048
  3. OXAZEPAM [Concomitant]
     Route: 048
  4. EQUANIL [Suspect]
     Route: 048
  5. EUROBIOL [Concomitant]
     Indication: PANCREATIC INSUFFICIENCY
     Route: 048
  6. SULFARLEM [Concomitant]
     Route: 048

REACTIONS (2)
  - COMA [None]
  - SUICIDE ATTEMPT [None]
